FAERS Safety Report 12090848 (Version 1)
Quarter: 2016Q1

REPORT INFORMATION
  Report Type: Spontaneous
  Country: FR (occurrence: FR)
  Receive Date: 20160218
  Receipt Date: 20160218
  Transmission Date: 20160526
  Serious: Yes (Hospitalization)
  Sender: FDA-Public Use
  Company Number: FR-SA-2016SA028833

PATIENT
  Age: 43 Year
  Sex: Male

DRUGS (10)
  1. OGASTORO [Suspect]
     Active Substance: LANSOPRAZOLE
     Route: 048
     Dates: start: 20150807, end: 20150814
  2. VANCOMYCIN [Suspect]
     Active Substance: VANCOMYCIN
     Route: 042
     Dates: start: 20150728, end: 20150814
  3. FLAGYL [Suspect]
     Active Substance: METRONIDAZOLE\METRONIDAZOLE HYDROCHLORIDE
     Indication: CLOSTRIDIUM DIFFICILE INFECTION
     Route: 048
     Dates: start: 20150805, end: 20150815
  4. CALCIPARINE [Suspect]
     Active Substance: HEPARIN CALCIUM
     Route: 058
     Dates: start: 20150807, end: 20150819
  5. LASILIX [Suspect]
     Active Substance: FUROSEMIDE
     Route: 048
     Dates: start: 20150807, end: 20150812
  6. AXEPIM [Suspect]
     Active Substance: CEFEPIME HYDROCHLORIDE
     Route: 065
     Dates: start: 20150730, end: 20150818
  7. TRIFLUCAN [Suspect]
     Active Substance: FLUCONAZOLE
     Route: 042
     Dates: start: 20150807, end: 20150818
  8. XANAX [Suspect]
     Active Substance: ALPRAZOLAM
     Route: 065
     Dates: start: 20150807, end: 20150811
  9. AMIKACIN [Suspect]
     Active Substance: AMIKACIN
     Route: 042
     Dates: start: 20150728, end: 20150730
  10. CILASTATIN/IMIPENEM [Suspect]
     Active Substance: CILASTATIN SODIUM\IMIPENEM
     Route: 042
     Dates: start: 20150728, end: 20150730

REACTIONS (1)
  - Drug reaction with eosinophilia and systemic symptoms [Recovering/Resolving]

NARRATIVE: CASE EVENT DATE: 20150810
